FAERS Safety Report 7602778-2 (Version None)
Quarter: 2011Q3

REPORT INFORMATION
  Report Type: 
  Country: None (occurrence: None)
  Receive Date: 20110712
  Receipt Date: 20110629
  Transmission Date: 20111222
  Serious: Yes (Hospitalization)
  Sender: FDA-Public Use
  Company Number: SE-JNJFOC-20110701027

PATIENT
  Age: 37 Year
  Sex: Female

DRUGS (3)
  1. REMICADE [Suspect]
     Indication: PSORIATIC ARTHROPATHY
     Route: 042
     Dates: start: 20051118
  2. REMICADE [Suspect]
     Route: 042
     Dates: start: 20110426, end: 20110530
  3. METHOTREXATE [Concomitant]

REACTIONS (2)
  - BLISTER [None]
  - DIVERTICULITIS [None]
